FAERS Safety Report 4384143-7 (Version None)
Quarter: 2004Q2

REPORT INFORMATION
  Report Type: 
  Country: None (occurrence: None)
  Receive Date: 20040621
  Receipt Date: 20040608
  Transmission Date: 20050107
  Serious: Yes (Other)
  Sender: FDA-Public Use
  Company Number: US-JNJFOC-20040602637

PATIENT
  Age: 59 Year
  Sex: Male
  Weight: 77.1115 kg

DRUGS (4)
  1. TOPAMAX [Suspect]
     Indication: PAIN
     Dosage: 75 MG, 1 IN 1 DAY, ORAL
     Route: 048
     Dates: start: 20040520
  2. NEURONTIN [Concomitant]
  3. LEXAPRO [Concomitant]
  4. FENTANYL [Concomitant]

REACTIONS (3)
  - DYSPHONIA [None]
  - GASTROOESOPHAGEAL REFLUX DISEASE [None]
  - STOMATITIS [None]
